FAERS Safety Report 7584395-6 (Version None)
Quarter: 2011Q2

REPORT INFORMATION
  Report Type: 
  Country: None (occurrence: None)
  Receive Date: 20110630
  Receipt Date: 20110621
  Transmission Date: 20111010
  Serious: Yes (Other)
  Sender: FDA-Public Use
  Company Number: GB-UCBSA-034783

PATIENT
  Sex: Male

DRUGS (3)
  1. ALENDRONATE SODIUM [Concomitant]
  2. KEPPRA [Suspect]
     Indication: EPILEPSY
     Route: 048
     Dates: end: 20080901
  3. KEPPRA [Suspect]
     Dosage: DISCONTINUED OVER A PERIOD OF TIME
     Dates: start: 20080901, end: 20080101

REACTIONS (13)
  - MUSCLE ATROPHY [None]
  - FEELING COLD [None]
  - DYSPNOEA [None]
  - MUSCULAR WEAKNESS [None]
  - APATHY [None]
  - CONFUSIONAL STATE [None]
  - CONVULSION [None]
  - PAIN [None]
  - FATIGUE [None]
  - LOSS OF CONSCIOUSNESS [None]
  - FALL [None]
  - EPISTAXIS [None]
  - BALANCE DISORDER [None]
